FAERS Safety Report 9686154 (Version 1)
Quarter: 2013Q4

REPORT INFORMATION
  Report Type: Spontaneous
  Country: PL (occurrence: PL)
  Receive Date: 20131113
  Receipt Date: 20131113
  Transmission Date: 20140711
  Serious: Yes (Death, Hospitalization)
  Sender: FDA-Public Use
  Company Number: PL-ACTAVIS-2013-20120

PATIENT
  Age: 52 Year
  Sex: Male

DRUGS (1)
  1. CARBAMAZEPINE (UNKNOWN) [Suspect]
     Indication: COMPLETED SUICIDE
     Dosage: UNK
     Route: 065
     Dates: start: 2010

REACTIONS (5)
  - Sudden cardiac death [Fatal]
  - Acute respiratory failure [Fatal]
  - Completed suicide [Fatal]
  - Intentional overdose [Fatal]
  - Toxicity to various agents [Fatal]
